FAERS Safety Report 23512681 (Version 1)
Quarter: 2024Q1

REPORT INFORMATION
  Report Type: Spontaneous
  Country: US (occurrence: US)
  Receive Date: 20240212
  Receipt Date: 20240212
  Transmission Date: 20240410
  Serious: No
  Sender: FDA-Public Use
  Company Number: CID000000000043176

PATIENT
  Sex: Female

DRUGS (2)
  1. FAMCICLOVIR [Suspect]
     Active Substance: FAMCICLOVIR
     Indication: Rash
     Route: 065
  2. FAMCICLOVIR [Suspect]
     Active Substance: FAMCICLOVIR
     Indication: Rash
     Route: 065

REACTIONS (1)
  - Product storage error [Unknown]
